FAERS Safety Report 16947384 (Version 2)
Quarter: 2019Q4

REPORT INFORMATION
  Report Type: Spontaneous
  Country: RO (occurrence: RO)
  Receive Date: 20191022
  Receipt Date: 20191217
  Transmission Date: 20200122
  Serious: Yes (Other)
  Sender: FDA-Public Use
  Company Number: RO-SHIRE-RO201935064

PATIENT

DRUGS (4)
  1. ELAPRASE [Suspect]
     Active Substance: IDURSULFASE
     Indication: MUCOPOLYSACCHARIDOSIS II
     Dosage: 12 MILLIGRAM, 2X A WEEK
     Route: 042
     Dates: start: 20151215, end: 20170111
  2. ELAPRASE [Suspect]
     Active Substance: IDURSULFASE
     Dosage: 80 ML/H
     Route: 042
     Dates: start: 20191203
  3. ELAPRASE [Suspect]
     Active Substance: IDURSULFASE
     Dosage: 80 ML/H
     Route: 042
     Dates: start: 20190901
  4. ELAPRASE [Suspect]
     Active Substance: IDURSULFASE
     Dosage: 80 ML/H
     Route: 042
     Dates: start: 20171212, end: 20171212

REACTIONS (7)
  - Skin reaction [Recovered/Resolved]
  - Drug hypersensitivity [Unknown]
  - Erythema [Recovered/Resolved]
  - Cough [Recovered/Resolved]
  - Sneezing [Recovered/Resolved]
  - Swelling [Recovered/Resolved]
  - Agitation [Recovered/Resolved]

NARRATIVE: CASE EVENT DATE: 20171212
